FAERS Safety Report 6253164-1 (Version None)
Quarter: 2009Q2

REPORT INFORMATION
  Report Type: 
  Country: None (occurrence: None)
  Receive Date: 20090626
  Receipt Date: 20080918
  Transmission Date: 20091009
  Serious: Yes (Hospitalization)
  Sender: FDA-Public Use
  Company Number: 586878

PATIENT
  Age: 83 Year
  Sex: Male

DRUGS (4)
  1. XELODA [Suspect]
     Indication: COLORECTAL CANCER METASTATIC
     Dates: start: 20080601
  2. XELODA [Suspect]
     Indication: METASTASES TO LIVER
     Dates: start: 20080601
  3. IRINOTECAN HCL [Suspect]
     Indication: COLORECTAL CANCER METASTATIC
     Dates: start: 20080601
  4. IRINOTECAN HCL [Suspect]
     Indication: METASTASES TO LIVER
     Dates: start: 20080601

REACTIONS (6)
  - AGEUSIA [None]
  - ALOPECIA [None]
  - ANOREXIA [None]
  - DEHYDRATION [None]
  - DIARRHOEA [None]
  - NAUSEA [None]
